FAERS Safety Report 25888585 (Version 1)
Quarter: 2025Q4

REPORT INFORMATION
  Report Type: Spontaneous
  Country: US (occurrence: US)
  Receive Date: 20251007
  Receipt Date: 20251007
  Transmission Date: 20260119
  Serious: No
  Sender: ELI LILLY AND COMPANY
  Company Number: US-ELI_LILLY_AND_COMPANY-US202510005134

PATIENT
  Age: 81 Year
  Sex: Female

DRUGS (1)
  1. EBGLYSS [Suspect]
     Active Substance: LEBRIKIZUMAB-LBKZ
     Indication: Dermatitis
     Dosage: 250 MG, UNKNOWN
     Route: 065
     Dates: start: 202504

REACTIONS (2)
  - Muscular weakness [Unknown]
  - Osteoarthritis [Unknown]
